FAERS Safety Report 7070699-2 (Version None)
Quarter: 2010Q4

REPORT INFORMATION
  Report Type: 
  Country: None (occurrence: None)
  Receive Date: 20101027
  Receipt Date: 20101027
  Transmission Date: 20110411
  Serious: Yes (Life-Threatening, Other)
  Sender: FDA-Public Use
  Company Number: None

PATIENT
  Age: 56 Year
  Sex: Female
  Weight: 77.1115 kg

DRUGS (1)
  1. NIACIN [Suspect]
     Indication: TINNITUS
     Dosage: 250MG 1XDAY PO
     Route: 048
     Dates: start: 20100927, end: 20101002

REACTIONS (11)
  - BLOOD PRESSURE DECREASED [None]
  - FLUSHING [None]
  - GASTROINTESTINAL HAEMORRHAGE [None]
  - HEADACHE [None]
  - HEART RATE INCREASED [None]
  - HYPERHIDROSIS [None]
  - MUSCULAR WEAKNESS [None]
  - PHARYNGEAL OEDEMA [None]
  - PRURITUS [None]
  - SINUS CONGESTION [None]
  - TONGUE OEDEMA [None]
